FAERS Safety Report 6845693-4 (Version None)
Quarter: 2010Q3

REPORT INFORMATION
  Report Type: 
  Country: None (occurrence: None)
  Receive Date: 20100715
  Receipt Date: 20070824
  Transmission Date: 20110219
  Serious: No
  Sender: FDA-Public Use
  Company Number: US-PFIZER INC-2007071376

PATIENT
  Sex: Female

DRUGS (1)
  1. CHANTIX [Suspect]
     Indication: SMOKING CESSATION THERAPY
     Dates: start: 20070301, end: 20070501

REACTIONS (7)
  - ABNORMAL FAECES [None]
  - DYSGEUSIA [None]
  - INSOMNIA [None]
  - NIGHTMARE [None]
  - SKIN ODOUR ABNORMAL [None]
  - SLEEP DISORDER [None]
  - URINE ODOUR ABNORMAL [None]
